FAERS Safety Report 7957253-2 (Version None)
Quarter: 2011Q4

REPORT INFORMATION
  Report Type: 
  Country: None (occurrence: None)
  Receive Date: 20111130
  Receipt Date: 20111117
  Transmission Date: 20120403
  Serious: No
  Sender: FDA-Public Use
  Company Number: TIR-00747

PATIENT
  Age: 28 Year
  Sex: Male

DRUGS (2)
  1. LEVOTHYROXINE SODIUM [Suspect]
     Dosage: 500 ?G / 300 ?G, ORAL
     Route: 048
  2. METFORMIN HCL [Suspect]
     Dosage: 500 MG/ 2.55 GRAM, ORAL
     Route: 048

REACTIONS (3)
  - TYPE 2 DIABETES MELLITUS [None]
  - DRUG INTERACTION [None]
  - HYPERTHYROIDISM [None]
